FAERS Safety Report 4982179-6 (Version None)
Quarter: 2006Q2

REPORT INFORMATION
  Report Type: 
  Country: None (occurrence: None)
  Receive Date: 20060424
  Receipt Date: 20060424
  Transmission Date: 20061013
  Serious: Yes (Other)
  Sender: FDA-Public Use
  Company Number: None

PATIENT
  Age: 34 Year
  Sex: Female
  Weight: 60.782 kg

DRUGS (11)
  1. LEVAQUIN [Suspect]
     Indication: URINARY TRACT INFECTION
     Dosage: 500 MG     TWICE PER DAY    PO  (4 DOSES TOTAL)
     Route: 048
     Dates: start: 20060419, end: 20060421
  2. HUMALOG [Concomitant]
  3. ASPIRIN [Concomitant]
  4. ZETIA [Concomitant]
  5. DIOVAN [Concomitant]
  6. LASIX [Concomitant]
  7. RENAGEL [Concomitant]
  8. SODIUM BICARD [Concomitant]
  9. PROCRIT [Concomitant]
  10. PLAVIX [Concomitant]
  11. COMPOUNDED TRIEST/PROGESTERONE CREAM [Concomitant]

REACTIONS (12)
  - ABDOMINAL PAIN UPPER [None]
  - ARTHRALGIA [None]
  - BODY TEMPERATURE FLUCTUATION [None]
  - DRUG PRESCRIBING ERROR [None]
  - DYSGEUSIA [None]
  - INSOMNIA [None]
  - PAIN IN EXTREMITY [None]
  - PARAESTHESIA [None]
  - RASH [None]
  - SHOULDER PAIN [None]
  - SUICIDAL IDEATION [None]
  - TENDON DISORDER [None]
